FAERS Safety Report 23314044 (Version 3)
Quarter: 2023Q4

REPORT INFORMATION
  Report Type: Spontaneous
  Country: MN (occurrence: None)
  Receive Date: 20231219
  Receipt Date: 20231225
  Transmission Date: 20240110
  Serious: Yes (Hospitalization, Other)
  Sender: FDA-Public Use
  Company Number: 2023A286475

PATIENT
  Age: 48 Year
  Sex: Male
  Weight: 68.7 kg

DRUGS (2)
  1. DAPAGLIFLOZIN [Suspect]
     Active Substance: DAPAGLIFLOZIN
     Indication: Type 2 diabetes mellitus
     Route: 048
  2. PLAVIX [Concomitant]
     Active Substance: CLOPIDOGREL BISULFATE

REACTIONS (4)
  - Weight decreased [Unknown]
  - Appendicitis [Unknown]
  - Ulcer [Unknown]
  - Fatigue [Unknown]
